FAERS Safety Report 8394950-1 (Version None)
Quarter: 2012Q2

REPORT INFORMATION
  Report Type: 
  Country: None (occurrence: None)
  Receive Date: 20120530
  Receipt Date: 20111109
  Transmission Date: 20120825
  Serious: Yes (Hospitalization)
  Sender: FDA-Public Use
  Company Number: US-GLAXOSMITHKLINE-A0953237A

PATIENT
  Age: 64 Year
  Sex: Female
  Weight: 87.7 kg

DRUGS (4)
  1. COUMADIN [Concomitant]
  2. FLOLAN [Suspect]
     Indication: PRODUCT USED FOR UNKNOWN INDICATION
     Route: 055
  3. DIURETIC [Concomitant]
  4. REMODULIN [Suspect]
     Indication: PULMONARY ARTERIAL HYPERTENSION
     Route: 042
     Dates: start: 20110331

REACTIONS (1)
  - PULMONARY OEDEMA [None]
